FAERS Safety Report 15695983 (Version 1)
Quarter: 2018Q4

REPORT INFORMATION
  Report Type: Spontaneous
  Country: FR (occurrence: FR)
  Receive Date: 20181206
  Receipt Date: 20181206
  Transmission Date: 20190205
  Serious: Yes (Hospitalization)
  Sender: FDA-Public Use
  Company Number: PHHY2018FR171567

PATIENT
  Age: 16 Year
  Sex: Female

DRUGS (4)
  1. FORMOTEROL [Concomitant]
     Active Substance: FORMOTEROL
     Indication: ASTHMA
     Dosage: 6 UG, BID
     Route: 065
  2. BECLOMETHASONE [Concomitant]
     Active Substance: BECLOMETHASONE
     Indication: ASTHMA
     Dosage: 100 UG, BID
     Route: 065
  3. RISPERIDONE. [Suspect]
     Active Substance: RISPERIDONE
     Indication: HALLUCINATION, AUDITORY
     Dosage: 1 MG, QD
     Route: 065
     Dates: start: 201611
  4. SALBUTAMOL [Concomitant]
     Active Substance: ALBUTEROL
     Indication: ASTHMA
     Route: 065

REACTIONS (4)
  - Diplopia [Recovered/Resolved]
  - Intracranial pressure increased [Recovered/Resolved]
  - Weight increased [Recovered/Resolved]
  - Papilloedema [Recovered/Resolved]

NARRATIVE: CASE EVENT DATE: 201703
